FAERS Safety Report 13008557 (Version 1)
Quarter: 2016Q4

REPORT INFORMATION
  Report Type: Spontaneous
  Country: US (occurrence: US)
  Receive Date: 20161208
  Receipt Date: 20161208
  Transmission Date: 20170207
  Serious: No
  Sender: FDA-Public Use
  Company Number: US-PFIZER INC-2016556747

PATIENT

DRUGS (3)
  1. ADVIL MENSTRUAL PAIN [Suspect]
     Active Substance: IBUPROFEN SODIUM
     Indication: DYSMENORRHOEA
     Dosage: UNK
  2. ADVIL MENSTRUAL PAIN [Suspect]
     Active Substance: IBUPROFEN SODIUM
     Indication: MUSCLE SPASMS
  3. ADVIL [Suspect]
     Active Substance: IBUPROFEN
     Dosage: UNK

REACTIONS (1)
  - Drug effect incomplete [Unknown]
